FAERS Safety Report 21282786 (Version 1)
Quarter: 2022Q3

REPORT INFORMATION
  Report Type: Spontaneous
  Country: CA (occurrence: CA)
  Receive Date: 20220901
  Receipt Date: 20220901
  Transmission Date: 20221026
  Serious: Yes (Hospitalization, Other)
  Sender: FDA-Public Use
  Company Number: CA-PFIZER INC-202201080214

PATIENT
  Age: 48 Year
  Sex: Female

DRUGS (21)
  1. METHOTREXATE SODIUM [Suspect]
     Active Substance: METHOTREXATE SODIUM
     Indication: Rheumatoid arthritis
     Dosage: 1 DF, DOSAGE INFO NOT AVAILABLE - DISCONTINUED
     Route: 065
  2. ACTEMRA [Concomitant]
     Active Substance: TOCILIZUMAB
     Dosage: UNK
  3. ANAKINRA [Concomitant]
     Active Substance: ANAKINRA
     Dosage: UNK, DAILY ,DISCONTINUED AUG2021
     Dates: end: 202108
  4. ANAKINRA [Concomitant]
     Active Substance: ANAKINRA
     Dosage: UNK, 1X/DAY ,
  5. CANAKINUMAB [Concomitant]
     Active Substance: CANAKINUMAB
     Dosage: UNK
  6. COLCHICINE [Concomitant]
     Active Substance: COLCHICINE
     Dosage: UNK
  7. ELAVIL [Concomitant]
     Active Substance: AMITRIPTYLINE HYDROCHLORIDE
     Dosage: 10 MG ,TAKE 10 MG BY MOUTH AT NIGHT IF NEEDED
     Route: 048
  8. ESOMEPRAZOLE MAGNESIUM [Concomitant]
     Active Substance: ESOMEPRAZOLE MAGNESIUM
     Dosage: 40 MG, 1X/DAY ,TAKE 40 MG BY MOUTH 1 (ONE) TIME EACH DAY BEFORE BREAKFAST DO NOT OPEN CAPSULE
     Route: 048
  9. HULIO [Concomitant]
     Active Substance: ADALIMUMAB-FKJP
     Indication: Arthritis
     Dosage: UNK
  10. KINERET [Concomitant]
     Active Substance: ANAKINRA
     Dosage: 100 MG/0.67 ML INJECTION, 2X/DAY
     Route: 058
  11. LEFLUNOMIDE [Concomitant]
     Active Substance: LEFLUNOMIDE
     Dosage: 10 MG, DAILY ,REDUCED TO 10MG DAILY, DISCONTINUED
  12. MEDROL [Concomitant]
     Active Substance: METHYLPREDNISOLONE
     Dosage: UNK
     Dates: end: 201812
  13. PLAQUENIL [Concomitant]
     Active Substance: HYDROXYCHLOROQUINE SULFATE
     Dosage: UNK
  14. PREDNISONE [Concomitant]
     Active Substance: PREDNISONE
     Dosage: 1 DF, DOSAGE INFO NOT AVAILABLE
     Route: 065
     Dates: end: 201812
  15. SYMBICORT [Concomitant]
     Active Substance: BUDESONIDE\FORMOTEROL FUMARATE DIHYDRATE
     Dosage: UNK, 2X/DAY , INHALE 1 PUFF 2X/DAY FOR 30 DAYS
     Route: 055
  16. SYNTHROID [Concomitant]
     Active Substance: LEVOTHYROXINE SODIUM
     Dosage: 200 UG, 1X/DAY
     Route: 048
  17. VENTOLIN HFA [Concomitant]
     Active Substance: ALBUTEROL SULFATE
     Dosage: UNK, INHALE 1 PUFF AS NEEDED
     Route: 055
  18. XELJANZ [Concomitant]
     Active Substance: TOFACITINIB CITRATE
     Indication: Arthritis
     Dosage: 1 DF
     Route: 048
  19. XELJANZ [Concomitant]
     Active Substance: TOFACITINIB CITRATE
     Indication: Rash
  20. DILAUDID [Concomitant]
     Active Substance: HYDROMORPHONE HYDROCHLORIDE
     Indication: Pain
     Dosage: 1 MG, EVERY 4 (FOUR) HOURS IF NEEDED
  21. MELOXICAM [Concomitant]
     Active Substance: MELOXICAM
     Indication: Pain
     Dosage: 7.5 MG, 2 (TWO) TIMES A DAY IF NEEDED
     Route: 048

REACTIONS (42)
  - Rheumatoid arthritis [Unknown]
  - Renal tubular necrosis [Unknown]
  - Acute kidney injury [Unknown]
  - Headache [Not Recovered/Not Resolved]
  - Pyrexia [Not Recovered/Not Resolved]
  - Back pain [Not Recovered/Not Resolved]
  - Cytopenia [Not Recovered/Not Resolved]
  - Still^s disease [Unknown]
  - Haemolysis [Unknown]
  - Thrombocytopenia [Unknown]
  - Interstitial lung disease [Unknown]
  - Pulmonary embolism [Unknown]
  - Haemophagocytic lymphohistiocytosis [Unknown]
  - Polyarthritis [Unknown]
  - Anaemia [Unknown]
  - Hepatosplenomegaly [Unknown]
  - Blood lactate dehydrogenase increased [Unknown]
  - Serum ferritin increased [Unknown]
  - Drug ineffective [Unknown]
  - Drug intolerance [Unknown]
  - Alopecia [Unknown]
  - Gastrointestinal disorder [Unknown]
  - Hyperhidrosis [Unknown]
  - Dyspnoea [Unknown]
  - Productive cough [Unknown]
  - Pain [Unknown]
  - Arthritis [Unknown]
  - Symptom recurrence [Unknown]
  - Hypertension [Unknown]
  - Night sweats [Unknown]
  - Arthritis [Unknown]
  - Rash [Recovered/Resolved]
  - Respiratory disorder [Unknown]
  - C-reactive protein increased [Unknown]
  - Red blood cell sedimentation rate increased [Unknown]
  - Blood creatine phosphokinase decreased [Unknown]
  - Rales [Unknown]
  - Joint swelling [Unknown]
  - Wrist deformity [Unknown]
  - Arthralgia [Unknown]
  - Lymphadenopathy [Unknown]
  - Chest pain [Unknown]

NARRATIVE: CASE EVENT DATE: 20210301
